FAERS Safety Report 5560432-5 (Version None)
Quarter: 2007Q4

REPORT INFORMATION
  Report Type: 
  Country: None (occurrence: None)
  Receive Date: 20071215
  Receipt Date: 20071108
  Transmission Date: 20080405
  Serious: Yes (Hospitalization)
  Sender: FDA-Public Use
  Company Number: US-ABBOTT-07P-163-0424086-00

PATIENT
  Sex: Male
  Weight: 132 kg

DRUGS (4)
  1. HUMIRA [Suspect]
     Indication: RHEUMATOID ARTHRITIS
     Route: 058
     Dates: start: 20040501, end: 20040601
  2. HUMIRA [Suspect]
     Route: 058
     Dates: start: 20040601, end: 20070101
  3. HUMIRA [Suspect]
     Route: 058
     Dates: start: 20070216, end: 20071011
  4. HUMIRA [Suspect]
     Route: 058
     Dates: start: 20071102

REACTIONS (6)
  - DRUG INEFFECTIVE [None]
  - FALL [None]
  - IMPAIRED HEALING [None]
  - JOINT SWELLING [None]
  - PAIN IN EXTREMITY [None]
  - UPPER LIMB FRACTURE [None]
